FAERS Safety Report 22231730 (Version 1)
Quarter: 2023Q2

REPORT INFORMATION
  Report Type: Spontaneous
  Country: US (occurrence: None)
  Receive Date: 20230420
  Receipt Date: 20230420
  Transmission Date: 20230721
  Serious: No
  Sender: FDA-Public Use
  Company Number: US-ROCHE-3091882

PATIENT
  Sex: Female

DRUGS (2)
  1. ESBRIET [Suspect]
     Active Substance: PIRFENIDONE
     Indication: Breast cancer
     Dosage: TAKE 1 TABLET 3 TIMES DAILY FOR 1 WEEK THEN 2 TABLETS 3 TIMES DAILY FOR 1 WEEK THEN 3 TABLETS 3 TIME
     Route: 048
  2. ESBRIET [Suspect]
     Active Substance: PIRFENIDONE
     Dosage: TAKE 3 TABLETS 3 TIMES DAILY WITH MEALS
     Route: 048

REACTIONS (4)
  - Product dose omission in error [Unknown]
  - Intentional product misuse [Unknown]
  - Nausea [Unknown]
  - Decreased appetite [Unknown]
